FAERS Safety Report 16786367 (Version 2)
Quarter: 2019Q3

REPORT INFORMATION
  Report Type: Spontaneous
  Country: AU (occurrence: AU)
  Receive Date: 20190909
  Receipt Date: 20190916
  Transmission Date: 20191005
  Serious: Yes (Hospitalization)
  Sender: FDA-Public Use
  Company Number: AU-MYLANLABS-2019M1083522

PATIENT
  Age: 46 Year
  Sex: Male

DRUGS (1)
  1. CLOZARIL [Suspect]
     Active Substance: CLOZAPINE
     Indication: SCHIZOPHRENIA
     Dosage: 175 MILLIGRAM
     Route: 048
     Dates: start: 20190819, end: 20190831

REACTIONS (3)
  - Adverse event [Unknown]
  - Obesity [Unknown]
  - Tachycardia [Unknown]

NARRATIVE: CASE EVENT DATE: 201908
